FAERS Safety Report 23330632 (Version 1)
Quarter: 2023Q4

REPORT INFORMATION
  Report Type: Spontaneous
  Country: FR (occurrence: FR)
  Receive Date: 20231222
  Receipt Date: 20231222
  Transmission Date: 20240109
  Serious: Yes (Life-Threatening, Hospitalization)
  Sender: FDA-Public Use
  Company Number: None

PATIENT
  Age: 44 Year
  Sex: Male
  Weight: 100 kg

DRUGS (1)
  1. FLUCONAZOLE [Suspect]
     Active Substance: FLUCONAZOLE
     Indication: Penile erosion
     Dosage: 1 DOSAGE FORM, QD
     Route: 048
     Dates: start: 20230618, end: 20230704

REACTIONS (1)
  - SJS-TEN overlap [Recovering/Resolving]

NARRATIVE: CASE EVENT DATE: 20230704
